FAERS Safety Report 7298632-9 (Version None)
Quarter: 2011Q1

REPORT INFORMATION
  Report Type: 
  Country: None (occurrence: None)
  Receive Date: 20110217
  Receipt Date: 20110210
  Transmission Date: 20110831
  Serious: Yes (Other)
  Sender: FDA-Public Use
  Company Number: NL-B.I. PHARMACEUTICALS,INC./RIDGEFIELD-2011-BP-02964YA

PATIENT
  Age: 86 Year
  Sex: Male

DRUGS (2)
  1. PROSCAR [Concomitant]
     Indication: PROSTATOMEGALY
     Dosage: 5 MG
  2. TAMSULOSIN HCL [Suspect]
     Indication: BENIGN PROSTATIC HYPERPLASIA
     Dosage: 0.4 MG
     Route: 048

REACTIONS (2)
  - EYE INFECTION [None]
  - FLOPPY IRIS SYNDROME [None]
